FAERS Safety Report 23074879 (Version 2)
Quarter: 2023Q4

REPORT INFORMATION
  Report Type: Spontaneous
  Country: KR (occurrence: KR)
  Receive Date: 20231017
  Receipt Date: 20231121
  Transmission Date: 20240109
  Serious: No
  Sender: FDA-Public Use
  Company Number: KR-PFIZER INC-PV202300160444

PATIENT
  Age: 13 Year
  Sex: Male

DRUGS (1)
  1. GENOTROPIN [Suspect]
     Active Substance: SOMATROPIN
     Indication: Short stature
     Dosage: 2.0 MG, 7 TIMES A WEEK
     Dates: start: 20230317

REACTIONS (2)
  - Device leakage [Unknown]
  - Poor quality product administered [Unknown]
